FAERS Safety Report 6326296-7 (Version None)
Quarter: 2009Q3

REPORT INFORMATION
  Report Type: 
  Country: None (occurrence: None)
  Receive Date: 20090820
  Receipt Date: 20090810
  Transmission Date: 20100115
  Serious: Yes (Hospitalization)
  Sender: FDA-Public Use
  Company Number: IPS_01743_2009

PATIENT
  Sex: Male

DRUGS (1)
  1. APOKYN [Suspect]
     Indication: DRUG USE FOR UNKNOWN INDICATION
     Dosage: 0.2 ML, FREQUENCY UNKNOWN. SUBCUTANEOUS
     Route: 058

REACTIONS (2)
  - FALL [None]
  - HIP FRACTURE [None]
